FAERS Safety Report 7201871-6 (Version None)
Quarter: 2010Q4

REPORT INFORMATION
  Report Type: 
  Country: None (occurrence: None)
  Receive Date: 20101229
  Receipt Date: 20101222
  Transmission Date: 20110411
  Serious: Yes (Other)
  Sender: FDA-Public Use
  Company Number: US-ASTRAZENECA-2010SE60409

PATIENT
  Age: 39 Year
  Sex: Male

DRUGS (6)
  1. OMEPRAZOLE [Suspect]
     Route: 048
  2. PLAVIX [Suspect]
     Route: 065
  3. COUMADIN [Suspect]
     Route: 065
  4. LOPRESSOR [Concomitant]
  5. DIGOXIN [Concomitant]
  6. ENALAPRIL MALEATE [Concomitant]

REACTIONS (1)
  - MYOCARDIAL INFARCTION [None]
